FAERS Safety Report 5519197-5 (Version None)
Quarter: 2007Q4

REPORT INFORMATION
  Report Type: 
  Country: None (occurrence: None)
  Receive Date: 20071116
  Receipt Date: 20071107
  Transmission Date: 20080405
  Serious: Yes (Hospitalization)
  Sender: FDA-Public Use
  Company Number: PHBS2007DK18205

PATIENT
  Age: 61 Year
  Sex: Male

DRUGS (10)
  1. DIOVAN [Suspect]
     Indication: HYPERTENSION
     Dosage: 80 MG, UNK
     Dates: start: 20020101
  2. DIOVAN [Suspect]
     Dosage: 160 MG, UNK
     Route: 048
  3. NORVASC [Suspect]
     Indication: ANGINA PECTORIS
     Dosage: 5 MG, UNK
     Dates: start: 20060101
  4. NORVASC [Suspect]
     Dosage: 10 MG, UNK
     Dates: start: 20070522
  5. ROSUVASTATIN [Concomitant]
     Dosage: 20 MG, UNK
  6. IMOZOP [Concomitant]
     Dosage: 7.5 MG, UNK
  7. MAGNYL [Concomitant]
     Dosage: 100 MG, UNK
  8. NEXIUM [Concomitant]
     Dosage: 20 MG, BID
  9. TIADIL [Concomitant]
     Dosage: 1 MG, UNK
  10. STESOLID [Concomitant]
     Dosage: 5 MG, UNK

REACTIONS (2)
  - ANGINA PECTORIS [None]
  - PAIN [None]
